FAERS Safety Report 23658119 (Version 2)
Quarter: 2024Q2

REPORT INFORMATION
  Report Type: Report from Study
  Country: US (occurrence: US)
  Receive Date: 20240321
  Receipt Date: 20240607
  Transmission Date: 20240716
  Serious: Yes (Other)
  Sender: FDA-Public Use
  Company Number: US-ABBVIE-5683026

PATIENT
  Sex: Male

DRUGS (2)
  1. RINVOQ [Suspect]
     Active Substance: UPADACITINIB
     Indication: Ankylosing spondylitis
     Dosage: FORM STRENGTH: 15 MILLIGRAM
     Route: 048
     Dates: start: 202401
  2. RINVOQ [Suspect]
     Active Substance: UPADACITINIB
     Indication: Ankylosing spondylitis
     Route: 048

REACTIONS (10)
  - Vasectomy [Unknown]
  - Back pain [Recovering/Resolving]
  - Joint range of motion decreased [Unknown]
  - Joint swelling [Recovering/Resolving]
  - Loss of personal independence in daily activities [Unknown]
  - Dysstasia [Unknown]
  - Arthropathy [Not Recovered/Not Resolved]
  - Postoperative wound infection [Unknown]
  - Pain [Recovering/Resolving]
  - Discomfort [Recovering/Resolving]

NARRATIVE: CASE EVENT DATE: 20240101
